FAERS Safety Report 6974339-X (Version None)
Quarter: 2010Q3

REPORT INFORMATION
  Report Type: 
  Country: None (occurrence: None)
  Receive Date: 20100909
  Receipt Date: 20100831
  Transmission Date: 20110219
  Serious: Yes (Other)
  Sender: FDA-Public Use
  Company Number: PHHY2010JP41305

PATIENT
  Sex: Female
  Weight: 64 kg

DRUGS (8)
  1. ZOMETA [Suspect]
     Indication: METASTASES TO BONE
     Dosage: 4 MG, UNK
     Route: 041
     Dates: start: 20071203, end: 20080629
  2. ZOMETA [Suspect]
     Dosage: 4 MG, UNK
     Route: 041
     Dates: start: 20080929
  3. FARESTON [Concomitant]
     Indication: BREAST CANCER
     Dosage: 120 MG, UNK
     Route: 048
     Dates: start: 20071024, end: 20080814
  4. ARIMIDEX [Concomitant]
     Indication: BREAST CANCER
     Dosage: 1 MG, UNK
     Route: 048
     Dates: start: 20080814, end: 20090624
  5. FLUOROURACIL [Concomitant]
     Indication: BREAST CANCER
     Dosage: 695 MG, UNK
     Route: 041
     Dates: start: 20090624, end: 20091221
  6. FARMORUBICIN [Concomitant]
     Indication: BREAST CANCER
     Dosage: 100 MG, UNK
     Route: 041
     Dates: start: 20090624, end: 20091221
  7. ENDOXAN [Concomitant]
     Indication: BREAST CANCER
     Dosage: 695 MG, UNK
     Route: 041
     Dates: start: 20090624, end: 20091221
  8. XELODA [Concomitant]
     Indication: BREAST CANCER
     Dosage: 2400 MG, UNK
     Route: 048
     Dates: start: 20100125

REACTIONS (5)
  - BONE DISORDER [None]
  - ORAL INFECTION [None]
  - OSTEOMYELITIS [None]
  - PAIN IN JAW [None]
  - TOOTH EXTRACTION [None]
